FAERS Safety Report 15749996 (Version 1)
Quarter: 2018Q4

REPORT INFORMATION
  Report Type: Spontaneous
  Country: US (occurrence: US)
  Receive Date: 20181205
  Receipt Date: 20181205
  Transmission Date: 20190205
  Serious: Yes (Death, Hospitalization)
  Sender: FDA-Public Use
  Company Number: None

PATIENT
  Age: 66 Year
  Sex: Female

DRUGS (11)
  1. FLUOCINONIDE  TOP OINT [Concomitant]
  2. OPSUMIT [Suspect]
     Active Substance: MACITENTAN
     Indication: PULMONARY ARTERIAL HYPERTENSION
     Route: 048
     Dates: start: 201510, end: 201809
  3. SPIRONOLACTONE. [Concomitant]
     Active Substance: SPIRONOLACTONE
  4. SILDENAFIL. [Concomitant]
     Active Substance: SILDENAFIL
  5. LIDOCAINE TO CREAM [Concomitant]
  6. CERTRALINE [Concomitant]
  7. ALBUTEROL. [Concomitant]
     Active Substance: ALBUTEROL
  8. PERCOCET [Concomitant]
     Active Substance: ACETAMINOPHEN\OXYCODONE HYDROCHLORIDE
  9. FUROSEMIDE. [Concomitant]
     Active Substance: FUROSEMIDE
  10. HYDROXYCHLOROMINE [Concomitant]
  11. DULCRO HFA [Concomitant]

REACTIONS (2)
  - Dyspnoea exertional [None]
  - Respiratory distress [None]

NARRATIVE: CASE EVENT DATE: 20180930
